FAERS Safety Report 6145911-4 (Version None)
Quarter: 2009Q2

REPORT INFORMATION
  Report Type: 
  Country: None (occurrence: None)
  Receive Date: 20090407
  Receipt Date: 20090226
  Transmission Date: 20091009
  Serious: No
  Sender: FDA-Public Use
  Company Number: US-BAYER-200914619NA

PATIENT
  Age: 20 Year
  Sex: Female

DRUGS (2)
  1. MIRENA [Suspect]
     Indication: CONTRACEPTION
     Dosage: CONTINUOUS
     Route: 015
     Dates: start: 20090106
  2. TYLENOL ES [Concomitant]
     Indication: PAIN
     Dates: start: 20090223

REACTIONS (1)
  - ABDOMINAL PAIN LOWER [None]
